FAERS Safety Report 25766243 (Version 2)
Quarter: 2025Q4

REPORT INFORMATION
  Report Type: Spontaneous
  Country: GB (occurrence: GB)
  Receive Date: 20250905
  Receipt Date: 20251022
  Transmission Date: 20260118
  Serious: Yes (Other)
  Sender: REGENERON
  Company Number: GB-BAYER-2025A109052

PATIENT
  Age: 82 Year
  Sex: Female

DRUGS (4)
  1. EYLEA HD [Suspect]
     Active Substance: AFLIBERCEPT
     Indication: Neovascular age-related macular degeneration
     Dosage: 8MG, RIGHT EYE~INTRAOCULAR, 114.3MG/ML, SOLUTION FOR INJECTION
     Route: 031
     Dates: start: 20250724
  2. EYLEA HD [Suspect]
     Active Substance: AFLIBERCEPT
     Indication: Choroidal neovascularisation
  3. MAXIDEX [Suspect]
     Active Substance: DEXAMETHASONE
     Indication: Product used for unknown indication
  4. OFLOXACIN [Concomitant]
     Active Substance: OFLOXACIN
     Indication: Product used for unknown indication
     Dosage: G EXOCIN QDS

REACTIONS (6)
  - Uveitis [Recovered/Resolved]
  - Vitritis [Recovering/Resolving]
  - Anterior chamber inflammation [Recovering/Resolving]
  - Iridocyclitis [Recovering/Resolving]
  - Vitreous floaters [Recovering/Resolving]
  - Eye inflammation [Recovering/Resolving]

NARRATIVE: CASE EVENT DATE: 20250801
